FAERS Safety Report 12581156 (Version 3)
Quarter: 2016Q4

REPORT INFORMATION
  Report Type: Report from Study
  Country: JP (occurrence: JP)
  Receive Date: 20160721
  Receipt Date: 20161214
  Transmission Date: 20170207
  Serious: Yes (Hospitalization)
  Sender: FDA-Public Use
  Company Number: JP-JNJFOC-20160402142

PATIENT
  Age: 67 Year
  Sex: Male
  Weight: 55 kg

DRUGS (5)
  1. DEXAMETHASONE. [Concomitant]
     Active Substance: DEXAMETHASONE
     Indication: PREMEDICATION
     Route: 065
  2. YONDELIS [Suspect]
     Active Substance: TRABECTEDIN
     Indication: MALIGNANT FIBROUS HISTIOCYTOMA METASTATIC
     Dosage: CYCLE 1, 24-HOUR INFUSION
     Route: 042
     Dates: start: 20160419
  3. YONDELIS [Suspect]
     Active Substance: TRABECTEDIN
     Indication: MALIGNANT FIBROUS HISTIOCYTOMA METASTATIC
     Dosage: CYCLE 1, 24-HOUR INFUSION
     Route: 042
     Dates: start: 20160517
  4. DEXAMETHASONE. [Concomitant]
     Active Substance: DEXAMETHASONE
     Indication: PREMEDICATION
     Route: 065
     Dates: start: 20160315
  5. YONDELIS [Suspect]
     Active Substance: TRABECTEDIN
     Indication: MALIGNANT FIBROUS HISTIOCYTOMA METASTATIC
     Dosage: CYCLE 1, 24-HOUR INFUSION
     Route: 042
     Dates: start: 20160315

REACTIONS (8)
  - Anaemia [Recovering/Resolving]
  - Febrile neutropenia [Recovered/Resolved]
  - Thrombocytopenia [Recovered/Resolved]
  - Hepatic function abnormal [Recovered/Resolved]
  - Hyponatraemia [Recovered/Resolved]
  - Neutrophil count decreased [Recovered/Resolved]
  - White blood cell count decreased [Recovered/Resolved]
  - Hypocalcaemia [Recovered/Resolved]

NARRATIVE: CASE EVENT DATE: 20160318
